FAERS Safety Report 23246291 (Version 2)
Quarter: 2023Q4

REPORT INFORMATION
  Report Type: Spontaneous
  Country: IT (occurrence: IT)
  Receive Date: 20231130
  Receipt Date: 20231212
  Transmission Date: 20240110
  Serious: Yes (Other)
  Sender: FDA-Public Use
  Company Number: IT-PFIZER INC-PV202300192294

PATIENT
  Age: 28 Year
  Sex: Female

DRUGS (1)
  1. METHYLPREDNISOLONE SODIUM SUCCINATE [Suspect]
     Active Substance: METHYLPREDNISOLONE SODIUM SUCCINATE
     Indication: Multiple sclerosis
     Dosage: 1 G, DAILY
     Route: 042

REACTIONS (1)
  - Cerebral venous thrombosis [Recovered/Resolved]
